FAERS Safety Report 6906215-2 (Version None)
Quarter: 2010Q3

REPORT INFORMATION
  Report Type: 
  Country: None (occurrence: None)
  Receive Date: 20100804
  Receipt Date: 20100729
  Transmission Date: 20110219
  Serious: Yes (Other)
  Sender: FDA-Public Use
  Company Number: US-PERRIGO-10US011749

PATIENT
  Sex: Male
  Weight: 106.58 kg

DRUGS (2)
  1. IBUPROFEN 200MG 647 [Suspect]
     Indication: ARTHRALGIA
     Dosage: 200 MG, QD
     Route: 048
     Dates: start: 20100601, end: 20100726
  2. ALLOPURINOL [Concomitant]
     Indication: GOUT
     Dosage: 100 MG, QD
     Route: 048

REACTIONS (1)
  - HAEMORRHAGE URINARY TRACT [None]
